FAERS Safety Report 6966283-9 (Version None)
Quarter: 2010Q3

REPORT INFORMATION
  Report Type: 
  Country: None (occurrence: None)
  Receive Date: 20100903
  Receipt Date: 20100823
  Transmission Date: 20110219
  Serious: Yes (Disabling)
  Sender: FDA-Public Use
  Company Number: PHHY2010CA54434

PATIENT
  Sex: Female

DRUGS (8)
  1. ACLASTA/ZOLEDRONATE T29581+A+ [Suspect]
     Indication: OSTEOPOROSIS
     Dosage: 5 MG, UNK
     Dates: start: 20091114
  2. LOPERAMIDE [Concomitant]
  3. RABEPRAZOLE SODIUM [Concomitant]
  4. CLONAZEPAM [Concomitant]
  5. ASACOL [Concomitant]
  6. FENOFIBRATE [Concomitant]
  7. FOLIC ACID [Concomitant]
  8. SINGULAIR [Concomitant]

REACTIONS (4)
  - DRUG INEFFECTIVE [None]
  - PAIN [None]
  - SPINAL COMPRESSION FRACTURE [None]
  - THORACIC VERTEBRAL FRACTURE [None]
